FAERS Safety Report 18809028 (Version 1)
Quarter: 2021Q1

REPORT INFORMATION
  Report Type: Spontaneous
  Country: NL (occurrence: NL)
  Receive Date: 20210129
  Receipt Date: 20210129
  Transmission Date: 20210419
  Serious: Yes (Other)
  Sender: FDA-Public Use
  Company Number: NL-PFIZER INC-2021069151

PATIENT
  Age: 66 Year
  Sex: Female

DRUGS (7)
  1. KEYTRUDA [Suspect]
     Active Substance: PEMBROLIZUMAB
     Indication: RENAL CELL CARCINOMA
     Dosage: 200 MILLIGRAM
     Route: 065
     Dates: start: 20190805
  2. AXITINIB [Suspect]
     Active Substance: AXITINIB
     Dosage: 4 MG
     Dates: start: 20201207, end: 202012
  3. XGEVA [Suspect]
     Active Substance: DENOSUMAB
     Indication: METASTASES TO BONE
     Route: 065
  4. AXITINIB [Suspect]
     Active Substance: AXITINIB
     Indication: RENAL CELL CARCINOMA
     Dosage: 5 MG
     Dates: start: 20190805, end: 201908
  5. AXITINIB [Suspect]
     Active Substance: AXITINIB
     Dosage: 5 MG
     Dates: start: 201908, end: 201910
  6. AXITINIB [Suspect]
     Active Substance: AXITINIB
     Dosage: 5 MG
     Dates: start: 201910, end: 201912
  7. AXITINIB [Suspect]
     Active Substance: AXITINIB
     Dosage: 5 MG
     Route: 065
     Dates: start: 202007

REACTIONS (6)
  - Neoplasm progression [Unknown]
  - Oligodipsia [Recovered/Resolved]
  - Blood pressure increased [Unknown]
  - Fatigue [Recovered/Resolved]
  - Decreased appetite [Recovered/Resolved]
  - Diarrhoea [Recovered/Resolved]

NARRATIVE: CASE EVENT DATE: 20190813
